FAERS Safety Report 9661360 (Version 1)
Quarter: 2013Q4

REPORT INFORMATION
  Report Type: Spontaneous
  Country: US (occurrence: None)
  Receive Date: 20131030
  Receipt Date: 20131030
  Transmission Date: 20140711
  Serious: Yes (Other)
  Sender: FDA-Public Use
  Company Number: AUR-APL-2013-09029

PATIENT
  Age: 41 Year
  Sex: Female
  Weight: 83.9 kg

DRUGS (3)
  1. METFORMIN [Suspect]
     Indication: TYPE 2 DIABETES MELLITUS
     Dosage: (500 MG, 2 IN 1 D)
     Dates: start: 20130920
  2. GLIPIZIDE (GLIPIZIDE) [Suspect]
     Indication: TYPE 2 DIABETES MELLITUS
     Dosage: (5 MG, 2 IN 1 D)
     Dates: start: 20130920, end: 201310
  3. LISINOPRIL (LISINOPRIL) [Concomitant]

REACTIONS (3)
  - Weight decreased [None]
  - Blood glucose increased [None]
  - Blood glucose decreased [None]
